FAERS Safety Report 7071800-7 (Version None)
Quarter: 2010Q4

REPORT INFORMATION
  Report Type: 
  Country: None (occurrence: None)
  Receive Date: 20101029
  Receipt Date: 20091023
  Transmission Date: 20110411
  Serious: No
  Sender: FDA-Public Use
  Company Number: A0813175A

PATIENT
  Sex: Female

DRUGS (9)
  1. ADVAIR DISKUS 100/50 [Suspect]
     Dosage: 1PUFF TWICE PER DAY
     Route: 055
  2. SINGULAIR [Concomitant]
  3. FLONASE [Concomitant]
  4. ALBUTEROL [Concomitant]
  5. NITROGLYCERIN [Concomitant]
  6. AMARYL [Concomitant]
  7. DIOVAN [Concomitant]
  8. VYTORIN [Concomitant]
  9. NASAL SALINE [Concomitant]

REACTIONS (1)
  - DYSPNOEA [None]
